FAERS Safety Report 14961857 (Version 1)
Quarter: 2018Q2

REPORT INFORMATION
  Report Type: Spontaneous
  Country: FR (occurrence: FR)
  Receive Date: 20180601
  Receipt Date: 20180601
  Transmission Date: 20180711
  Serious: Yes (Hospitalization)
  Sender: FDA-Public Use
  Company Number: FR-TEVA-2018-FR-899882

PATIENT
  Age: 73 Year
  Sex: Male
  Weight: 98 kg

DRUGS (9)
  1. XARELTO [Suspect]
     Active Substance: RIVAROXABAN
     Indication: ATRIAL FIBRILLATION
     Dosage: 1 DOSAGE FORMS DAILY;
     Route: 048
     Dates: start: 20180206, end: 20180209
  2. EUPANTOL [Suspect]
     Active Substance: PANTOPRAZOLE SODIUM
     Indication: GASTRODUODENAL ULCER
     Dosage: 1 DOSAGE FORMS DAILY;
     Route: 048
     Dates: start: 20180205, end: 20180209
  3. METFORMINE [Concomitant]
     Active Substance: METFORMIN HYDROCHLORIDE
  4. PRAVASTATIN. [Suspect]
     Active Substance: PRAVASTATIN
     Indication: PRODUCT USED FOR UNKNOWN INDICATION
     Dosage: 1 DOSAGE FORMS DAILY;
     Route: 048
     Dates: start: 20180205, end: 20180209
  5. AMOXICILLINE ARROW 1 G, COMPRIM? PELLICUL? DISPERSIBLE [Suspect]
     Active Substance: AMOXICILLIN
     Indication: ERYSIPELAS
     Dosage: 6 DOSAGE FORMS DAILY;
     Route: 048
     Dates: start: 20180204, end: 20180208
  6. DALACINE (CLINDAMYCIN PHOSPHATE) [Suspect]
     Active Substance: CLINDAMYCIN PHOSPHATE
     Indication: ERYSIPELAS
     Dosage: 1800 MILLIGRAM DAILY;
     Route: 048
     Dates: start: 20180205, end: 20180208
  7. VALSARTAN. [Concomitant]
     Active Substance: VALSARTAN
  8. BISOPROLOL ARROW [Suspect]
     Active Substance: BISOPROLOL
     Indication: HYPERTENSION
     Route: 048
     Dates: start: 20180206, end: 20180209
  9. LASILIX [Suspect]
     Active Substance: FUROSEMIDE
     Indication: HYPERTENSION
     Dosage: 40 MILLIGRAM DAILY;
     Route: 048
     Dates: start: 20180204, end: 20180209

REACTIONS (3)
  - Dermatitis psoriasiform [Recovered/Resolved]
  - Pruritus [Recovering/Resolving]
  - Eosinophilia [Recovering/Resolving]

NARRATIVE: CASE EVENT DATE: 20180206
